FAERS Safety Report 21857065 (Version 1)
Quarter: 2023Q1

REPORT INFORMATION
  Report Type: Spontaneous
  Country: NO (occurrence: NO)
  Receive Date: 20230113
  Receipt Date: 20230113
  Transmission Date: 20230418
  Serious: Yes (Disabling)
  Sender: FDA-Public Use
  Company Number: None

PATIENT
  Age: 30 Year
  Sex: Male
  Weight: 97 kg

DRUGS (3)
  1. CLONAZEPAM [Interacting]
     Active Substance: CLONAZEPAM
     Indication: Restlessness
     Dates: start: 2007, end: 2015
  2. PREGABALIN [Interacting]
     Active Substance: PREGABALIN
     Indication: Anxiety
     Dosage: MIXTURE, SOLUTION?EVERY 12 HOUR ?DAILY DOSE: 300 MILLIGRAM
     Dates: start: 2007
  3. PREGABALIN [Interacting]
     Active Substance: PREGABALIN
     Indication: Restlessness
     Dosage: MIXTURE, SOLUTION?EVERY 12 HOUR ?DAILY DOSE: 300 MILLIGRAM
     Dates: start: 2007

REACTIONS (6)
  - Gait disturbance [Recovered/Resolved with Sequelae]
  - Prolapse [Recovered/Resolved with Sequelae]
  - Anxiety [Recovered/Resolved with Sequelae]
  - Wheelchair user [Recovered/Resolved with Sequelae]
  - Paradoxical drug reaction [Recovered/Resolved with Sequelae]
  - Drug interaction [Unknown]

NARRATIVE: CASE EVENT DATE: 20100101
